FAERS Safety Report 15351819 (Version 2)
Quarter: 2018Q4

REPORT INFORMATION
  Report Type: Spontaneous
  Country: US (occurrence: US)
  Receive Date: 20180905
  Receipt Date: 20181029
  Transmission Date: 20190204
  Serious: No
  Sender: FDA-Public Use
  Company Number: US-BAYER-2018-161948

PATIENT
  Age: 45 Year
  Sex: Female

DRUGS (1)
  1. MIRENA [Suspect]
     Active Substance: LEVONORGESTREL
     Dosage: 20 MCG/24HR, CONT
     Route: 015
     Dates: start: 20140820, end: 20180822

REACTIONS (3)
  - Smear cervix abnormal [None]
  - Unintentional medical device removal [None]
  - Biopsy cervix [None]

NARRATIVE: CASE EVENT DATE: 20180822
